FAERS Safety Report 8576055-X (Version None)
Quarter: 2012Q3

REPORT INFORMATION
  Report Type: 
  Country: None (occurrence: None)
  Receive Date: 20120807
  Receipt Date: 20120803
  Transmission Date: 20120928
  Serious: Yes (Hospitalization, Other)
  Sender: FDA-Public Use
  Company Number: US-TEVA-342264USA

PATIENT
  Sex: Male

DRUGS (10)
  1. DASATINIB [Suspect]
     Indication: ACUTE LYMPHOCYTIC LEUKAEMIA
     Dosage: ONE DAY
     Route: 048
     Dates: start: 20120426
  2. DEXAMETHASONE [Suspect]
  3. ONDANSETRON [Concomitant]
     Dates: start: 20120513, end: 20120516
  4. GLUTAMIC ACID [Concomitant]
     Dates: start: 20120513, end: 20120516
  5. VINCRISTINE [Suspect]
     Indication: ACUTE LYMPHOCYTIC LEUKAEMIA
     Route: 042
     Dates: start: 20120503
  6. DOXORUBICIN HYDROCHLORIDE [Suspect]
  7. LORAZEPAM [Concomitant]
     Dates: start: 20120513, end: 20120516
  8. MORPHINE SULFATE [Concomitant]
     Dates: start: 20120513, end: 20120516
  9. METHOTREXATE [Suspect]
     Route: 037
     Dates: start: 20120511
  10. BACTRIM [Concomitant]
     Dates: start: 20120513, end: 20120516

REACTIONS (1)
  - FEBRILE NEUTROPENIA [None]
